FAERS Safety Report 20839572 (Version 1)
Quarter: 2022Q2

REPORT INFORMATION
  Report Type: Other
  Country: KR (occurrence: None)
  Receive Date: 20220517
  Receipt Date: 20220517
  Transmission Date: 20220721
  Serious: Yes (Death, Hospitalization)
  Sender: FDA-Public Use
  Company Number: KR-ROCHE-2573337

PATIENT
  Age: 72 Year
  Sex: Male
  Weight: 68 kg

DRUGS (7)
  1. ATEZOLIZUMAB [Suspect]
     Active Substance: ATEZOLIZUMAB
     Indication: Non-small cell lung cancer
     Dosage: FREQUENCY 1
     Route: 041
     Dates: start: 20200128
  2. ATEZOLIZUMAB [Suspect]
     Active Substance: ATEZOLIZUMAB
     Dosage: FREQUENCY 1
     Route: 041
     Dates: start: 20200218
  3. RINOEBASTEL [Concomitant]
     Indication: Prophylaxis
     Route: 048
     Dates: start: 20191217
  4. MEGESTROL [Concomitant]
     Active Substance: MEGESTROL
     Indication: Prophylaxis
     Route: 048
     Dates: start: 20191119
  5. LEVODROPROPIZINE [Concomitant]
     Active Substance: LEVODROPROPIZINE
     Indication: Prophylaxis
     Route: 048
     Dates: start: 20191217
  6. HERBALS [Concomitant]
     Active Substance: HERBALS
     Indication: Prophylaxis
     Route: 048
     Dates: start: 20191105
  7. FREAMINE III NOS [Concomitant]
     Active Substance: AMINO ACIDS
     Indication: Prophylaxis
     Route: 042
     Dates: start: 20200218, end: 20200218

REACTIONS (3)
  - Pulmonary tuberculosis [Not Recovered/Not Resolved]
  - Pneumonia [Not Recovered/Not Resolved]
  - Hepatic failure [Fatal]

NARRATIVE: CASE EVENT DATE: 20200222
